FAERS Safety Report 24274307 (Version 3)
Quarter: 2024Q3

REPORT INFORMATION
  Report Type: Spontaneous
  Country: US (occurrence: US)
  Receive Date: 20240902
  Receipt Date: 20240924
  Transmission Date: 20241016
  Serious: Yes (Other)
  Sender: ROCHE
  Company Number: US-ROCHE-10000070194

PATIENT
  Age: 10 Year
  Sex: Male
  Weight: 71.8 kg

DRUGS (1)
  1. HEMLIBRA [Suspect]
     Active Substance: EMICIZUMAB-KXWH
     Indication: Factor VIII deficiency
     Dosage: STRENGTH: 105 MG/0.7 ML; 150 MG/ML
     Route: 058
     Dates: start: 202305

REACTIONS (2)
  - Foot fracture [Unknown]
  - Injury [Unknown]

NARRATIVE: CASE EVENT DATE: 20240802
